FAERS Safety Report 24402894 (Version 3)
Quarter: 2024Q4

REPORT INFORMATION
  Report Type: Spontaneous
  Country: US (occurrence: US)
  Receive Date: 20241007
  Receipt Date: 20241031
  Transmission Date: 20250114
  Serious: No
  Sender: GLAXOSMITHKLINE
  Company Number: US-GSK-US2024AMR121271

PATIENT
  Sex: Female

DRUGS (1)
  1. ZEJULA [Suspect]
     Active Substance: NIRAPARIB
     Indication: Ovarian cancer
     Dosage: 200 MG, QD

REACTIONS (7)
  - Nausea [Recovering/Resolving]
  - Dizziness [Unknown]
  - Decreased appetite [Unknown]
  - Feeling abnormal [Unknown]
  - Platelet count decreased [Unknown]
  - Contusion [Unknown]
  - Urinary tract infection [Unknown]
